FAERS Safety Report 6843876-0 (Version None)
Quarter: 2010Q3

REPORT INFORMATION
  Report Type: 
  Country: None (occurrence: None)
  Receive Date: 20100715
  Receipt Date: 20100707
  Transmission Date: 20110219
  Serious: Yes (Hospitalization)
  Sender: FDA-Public Use
  Company Number: PHHY2010JP44762

PATIENT
  Age: 65 Year
  Sex: Male

DRUGS (2)
  1. TEGRETOL [Suspect]
     Indication: EPILEPSY
     Dosage: 200 MG
     Route: 048
     Dates: start: 20090101
  2. TEGRETOL [Suspect]
     Dosage: 300 MG
     Route: 048

REACTIONS (2)
  - HEPATITIS CHOLESTATIC [None]
  - RENAL TUBULAR NECROSIS [None]
